FAERS Safety Report 15570609 (Version 1)
Quarter: 2018Q4

REPORT INFORMATION
  Report Type: Spontaneous
  Country: FR (occurrence: FR)
  Receive Date: 20181031
  Receipt Date: 20181031
  Transmission Date: 20190205
  Serious: Yes (Hospitalization)
  Sender: FDA-Public Use
  Company Number: FR-PFIZER INC-2018443019

PATIENT
  Age: 79 Year
  Sex: Female
  Weight: 65 kg

DRUGS (9)
  1. PARACETAMOL [Concomitant]
     Active Substance: ACETAMINOPHEN
     Dosage: UNK
  2. COUMADINE [Interacting]
     Active Substance: WARFARIN SODIUM
     Indication: VASCULAR DEVICE USER
     Dosage: 1 TABLET, DAILY
     Route: 048
     Dates: start: 20180915, end: 20181002
  3. PERINDOPRIL [Concomitant]
     Active Substance: PERINDOPRIL
     Dosage: UNK
  4. ESOMEPRAZOLE. [Concomitant]
     Active Substance: ESOMEPRAZOLE MAGNESIUM
     Dosage: UNK
  5. COLECALCIFEROL [Concomitant]
     Active Substance: CHOLECALCIFEROL
     Dosage: UNK
  6. SIMVASTATINE [Concomitant]
     Active Substance: SIMVASTATIN
     Dosage: UNK
  7. AMIODARONE HCL [Suspect]
     Active Substance: AMIODARONE HYDROCHLORIDE
     Dosage: UNK
     Route: 048
  8. KARDEGIC [Interacting]
     Active Substance: ASPIRIN DL-LYSINE
     Indication: VASCULAR DEVICE USER
     Dosage: 1 DF, DAILY (IN DOSE-SACHET)
     Route: 048
     Dates: end: 20181004
  9. LERCANIDIPINE [Concomitant]
     Active Substance: LERCANIDIPINE
     Dosage: UNK

REACTIONS (4)
  - Spontaneous haematoma [Recovering/Resolving]
  - Drug interaction [Unknown]
  - International normalised ratio increased [Recovered/Resolved]
  - Accidental overdose [Unknown]

NARRATIVE: CASE EVENT DATE: 20180929
